FAERS Safety Report 4688562-0 (Version None)
Quarter: 2005Q2

REPORT INFORMATION
  Report Type: 
  Country: None (occurrence: None)
  Receive Date: 20050311
  Receipt Date: 20050311
  Transmission Date: 20051028
  Serious: Yes (Other)
  Sender: FDA-Public Use
  Company Number: None

PATIENT
  Age: 66 Year
  Sex: Female

DRUGS (2)
  1. WARFARIN [Suspect]
     Indication: ATRIAL FIBRILLATION
     Dosage: 5 MG ON MONDAY  2.5 MG OTHER DRUG APPROVED
  2. WARFARIN [Suspect]
     Indication: CEREBROVASCULAR ACCIDENT
     Dosage: 5 MG ON MONDAY  2.5 MG OTHER DRUG APPROVED

REACTIONS (1)
  - INTERNATIONAL NORMALISED RATIO FLUCTUATION [None]
